FAERS Safety Report 13257801 (Version 2)
Quarter: 2017Q1

REPORT INFORMATION
  Report Type: Spontaneous
  Country: US (occurrence: US)
  Receive Date: 20170221
  Receipt Date: 20170309
  Transmission Date: 20170428
  Serious: Yes (Hospitalization)
  Sender: FDA-Public Use
  Company Number: US-SA-2017SA026305

PATIENT
  Age: 66 Year
  Sex: Male
  Weight: 63.95 kg

DRUGS (21)
  1. HUMALOG [Concomitant]
     Active Substance: INSULIN LISPRO
     Dosage: 100 UNIT/ML SOLUTION AS DIRECTED BEFORE MEALS DX 250.02
     Route: 058
     Dates: start: 20120327
  2. GLUCOSE [Concomitant]
     Active Substance: DEXTROSE
     Indication: BLOOD GLUCOSE DECREASED
     Dosage: 2 TABLETS AS NEEDED FOR LOW BLOOD SUGAR ORALLY AS NEEDED UP TO 8 ?TIMES/DAY
     Route: 048
     Dates: start: 20140514
  3. ALCOHOL. [Concomitant]
     Active Substance: ALCOHOL
     Dosage: AS DIRECTED APPLY TO SKIN 12 TIMES A DAY
     Dates: start: 20150417
  4. HYDROCHLOROTHIAZIDE/LISINOPRIL [Concomitant]
     Dosage: 10-12.5 MG
     Route: 048
     Dates: start: 20170118
  5. ASPIRIN. [Concomitant]
     Active Substance: ASPIRIN
     Dosage: 81 MG
     Route: 048
  6. REFRESH [Concomitant]
     Active Substance: UNSPECIFIED INGREDIENT
     Dosage: REFRESH 1.4-0.6 % SOLUTION
     Route: 047
     Dates: start: 20160516, end: 20170204
  7. PANTOPRAZOLE SODIUM. [Concomitant]
     Active Substance: PANTOPRAZOLE SODIUM
     Route: 048
     Dates: start: 20160524
  8. TACROLIMUS. [Concomitant]
     Active Substance: TACROLIMUS
     Dosage: 1 APPLICATION TO AFFECTED AREA EXTERNALLY TWICE A DAY
  9. LANTUS [Suspect]
     Active Substance: INSULIN GLARGINE
     Indication: TYPE 1 DIABETES MELLITUS
     Dosage: DOSE:4 UNIT(S)
     Route: 058
  10. BENZTROPINE MESYLATE. [Concomitant]
     Active Substance: BENZTROPINE MESYLATE
     Dosage: 2 MG
     Route: 048
  11. LATUDA [Concomitant]
     Active Substance: LURASIDONE HYDROCHLORIDE
     Dosage: LATUDA 40 MG
     Route: 048
  12. GLUCOSE [Concomitant]
     Active Substance: DEXTROSE
     Dosage: AS DIRECTED GLUCOSE BLOOD TEST THREE TIMES A DAY
     Dates: start: 20130524
  13. LANTUS [Suspect]
     Active Substance: INSULIN GLARGINE
     Indication: TYPE 1 DIABETES MELLITUS
     Dosage: DOSE:12 UNIT(S)
     Route: 058
  14. LIDOCAINE. [Concomitant]
     Active Substance: LIDOCAINE
     Dosage: LIDOCAINE 5 %?APPLY SMALL AMOUNT EXTERNALLY TWICE DAILY AS NEEDED
     Dates: start: 20170109
  15. MUPIROCIN. [Concomitant]
     Active Substance: MUPIROCIN
     Dosage: 1 APPLICATION TO AFFECTED AREA EXTERNALLY THREE TIMES A DAY
     Dates: start: 20170125
  16. LANTUS [Suspect]
     Active Substance: INSULIN GLARGINE
     Indication: TYPE 1 DIABETES MELLITUS
     Dosage: DOSE:16 UNIT(S)
     Route: 058
  17. FLONASE [Concomitant]
     Active Substance: FLUTICASONE PROPIONATE
     Dosage: FLONASE ALLERGY RELIEF 50 MCG/ACT SUSPENSION?1 SPRAY IN EACH NOSTRIL NASALLY ONCE A DAY
     Route: 045
     Dates: start: 20151201
  18. GLUCAGEN HYPOKIT [Concomitant]
     Active Substance: GLUCAGON HYDROCHLORIDE
     Dosage: 1 MG SOLUTION RECONSTITUTED, SIG: AS DIRECTED INJECTION AS NEEDED
     Dates: start: 20150914
  19. ZOSTAVAX [Concomitant]
     Active Substance: VARICELLA-ZOSTER VIRUS STRAIN OKA/MERCK LIVE ANTIGEN
     Dosage: ZOSTAVAX 19400 UNT/0.65ML SOLUTION RECONSTITUTED
     Route: 058
     Dates: start: 20170103, end: 20170103
  20. TAMSULOSIN HYDROCHLORIDE. [Concomitant]
     Active Substance: TAMSULOSIN HYDROCHLORIDE
     Route: 048
     Dates: start: 20151216
  21. ACETAMINOPHEN. [Concomitant]
     Active Substance: ACETAMINOPHEN
     Indication: PAIN
     Dosage: 2 TABLETS ORALLY EVERY 6 HRS AS NEEDED FOR PAIN
     Route: 048

REACTIONS (3)
  - Intestinal mass [Unknown]
  - Hernia [Unknown]
  - Blood glucose increased [Recovered/Resolved]

NARRATIVE: CASE EVENT DATE: 201608
